FAERS Safety Report 16540868 (Version 1)
Quarter: 2019Q3

REPORT INFORMATION
  Report Type: Spontaneous
  Country: US (occurrence: US)
  Receive Date: 20190707
  Receipt Date: 20190707
  Transmission Date: 20191004
  Serious: Yes (Other)
  Sender: FDA-Public Use
  Company Number: None

PATIENT
  Age: 42 Year
  Sex: Male
  Weight: 117 kg

DRUGS (1)
  1. LATUDA [Suspect]
     Active Substance: LURASIDONE HYDROCHLORIDE
     Indication: BIPOLAR DISORDER
     Route: 048
     Dates: start: 20180508

REACTIONS (8)
  - Joint dislocation [None]
  - Weight increased [None]
  - Lower limb fracture [None]
  - Dysphagia [None]
  - Joint noise [None]
  - Arthropathy [None]
  - Dyspnoea [None]
  - Connective tissue disorder [None]

NARRATIVE: CASE EVENT DATE: 20190326
